FAERS Safety Report 4317555-8 (Version None)
Quarter: 2004Q1

REPORT INFORMATION
  Report Type: 
  Country: None (occurrence: None)
  Receive Date: 20040312
  Receipt Date: 20040301
  Transmission Date: 20041129
  Serious: No
  Sender: FDA-Public Use
  Company Number: 04P-167-0252233-00

PATIENT
  Age: 8 Year
  Sex: Male
  Weight: 30.1 kg

DRUGS (1)
  1. ERYTHROMYCIN BASE [Suspect]
     Indication: INFECTION
     Dosage: 250 MG, 1 IN 1 D, PER ORAL
     Route: 048
     Dates: start: 20030121, end: 20030128

REACTIONS (3)
  - DEHYDRATION [None]
  - OPEN WOUND [None]
  - STEVENS-JOHNSON SYNDROME [None]
